FAERS Safety Report 12351180 (Version 1)
Quarter: 2016Q2

REPORT INFORMATION
  Report Type: Spontaneous
  Country: US (occurrence: None)
  Receive Date: 20160509
  Receipt Date: 20160509
  Transmission Date: 20160815
  Serious: No
  Sender: FDA-Public Use
  Company Number: None

PATIENT
  Age: 72 Year
  Sex: Male
  Weight: 92.4 kg

DRUGS (15)
  1. FERROUS SULFATE. [Concomitant]
     Active Substance: FERROUS SULFATE
  2. NOVOLIN INSULIN [Concomitant]
  3. METOLAZONE. [Concomitant]
     Active Substance: METOLAZONE
  4. ALFUZOSIN [Concomitant]
     Active Substance: ALFUZOSIN
  5. ROCALTROL [Concomitant]
     Active Substance: CALCITRIOL
  6. VITAMIN D [Concomitant]
     Active Substance: CHOLECALCIFEROL
  7. ENTRESTO [Suspect]
     Active Substance: SACUBITRIL\VALSARTAN
     Indication: CARDIAC FAILURE CONGESTIVE
     Route: 048
     Dates: start: 20160422
  8. ULORIC [Concomitant]
     Active Substance: FEBUXOSTAT
  9. PLAVIX [Concomitant]
     Active Substance: CLOPIDOGREL BISULFATE
  10. DIGOXIN. [Concomitant]
     Active Substance: DIGOXIN
  11. ASPIRIN. [Concomitant]
     Active Substance: ASPIRIN
  12. SIMVASTATIN. [Concomitant]
     Active Substance: SIMVASTATIN
  13. CARVEDILOL. [Concomitant]
     Active Substance: CARVEDILOL
  14. POTSSIUM CHLORIDE [Concomitant]
  15. XARELTO [Concomitant]
     Active Substance: RIVAROXABAN

REACTIONS (4)
  - Acute kidney injury [None]
  - Hyperkalaemia [None]
  - Condition aggravated [None]
  - Cardiac failure congestive [None]

NARRATIVE: CASE EVENT DATE: 20160427
